FAERS Safety Report 7904704-5 (Version None)
Quarter: 2011Q4

REPORT INFORMATION
  Report Type: 
  Country: None (occurrence: None)
  Receive Date: 20111109
  Receipt Date: 20111102
  Transmission Date: 20120403
  Serious: Yes (Other)
  Sender: FDA-Public Use
  Company Number: GB-GLAXOSMITHKLINE-B0760539A

PATIENT
  Age: 41 Year
  Sex: Female

DRUGS (2)
  1. FLUTICASONE PROPIONATE/SALMETEROL [Suspect]
     Indication: ASTHMA
     Dosage: 2PUFF TWICE PER DAY
     Route: 055
  2. FLUTICASONE FUROATE [Concomitant]

REACTIONS (5)
  - TRACHEAL HAEMORRHAGE [None]
  - BRONCHIAL HAEMORRHAGE [None]
  - TRACHEAL INJURY [None]
  - BRONCHIAL INJURY [None]
  - DYSPHONIA [None]
